FAERS Safety Report 6288080-2 (Version None)
Quarter: 2009Q3

REPORT INFORMATION
  Report Type: 
  Country: None (occurrence: None)
  Receive Date: 20090729
  Receipt Date: 20090721
  Transmission Date: 20100115
  Serious: Yes (Death, Other)
  Sender: FDA-Public Use
  Company Number: PHEH2009US07957

PATIENT
  Sex: Female

DRUGS (1)
  1. EXJADE [Suspect]
     Dosage: 750 MG DAILY
     Route: 048

REACTIONS (3)
  - ABDOMINAL DISCOMFORT [None]
  - DIVERTICULITIS [None]
  - MYELODYSPLASTIC SYNDROME [None]
